FAERS Safety Report 21743668 (Version 1)
Quarter: 2022Q4

REPORT INFORMATION
  Report Type: Spontaneous
  Country: UY (occurrence: UY)
  Receive Date: 20221217
  Receipt Date: 20221217
  Transmission Date: 20230112
  Serious: Yes (Hospitalization, Other)
  Sender: FDA-Public Use
  Company Number: UY-MLMSERVICE-20221202-3950075-1

PATIENT
  Age: 66 Year
  Sex: Male

DRUGS (7)
  1. CAPECITABINE [Suspect]
     Active Substance: CAPECITABINE
     Indication: Oesophageal carcinoma
     Dosage: CUMULATIVE DOSE: 3 CYCLICAL
     Dates: start: 2019
  2. OXALIPLATIN [Suspect]
     Active Substance: OXALIPLATIN
     Indication: Oesophageal carcinoma
     Dosage: CUMULATIVE DOSE: 3 CYCLICAL
     Dates: start: 2019
  3. EPIRUBICIN [Suspect]
     Active Substance: EPIRUBICIN
     Indication: Oesophageal carcinoma
     Dosage: CUMULATIVE DOSE: 3 CYCLICAL
     Dates: start: 2019
  4. ENALAPRIL [Concomitant]
     Active Substance: ENALAPRIL
     Indication: Acute myocardial infarction
  5. ASPIRIN [Concomitant]
     Active Substance: ASPIRIN
     Indication: Acute myocardial infarction
  6. BISOPROLOL [Concomitant]
     Active Substance: BISOPROLOL
     Indication: Acute myocardial infarction
  7. ATORVASTATIN [Concomitant]
     Active Substance: ATORVASTATIN
     Indication: Acute myocardial infarction

REACTIONS (2)
  - Angina pectoris [Recovering/Resolving]
  - Post angioplasty restenosis [Recovering/Resolving]

NARRATIVE: CASE EVENT DATE: 20190101
